FAERS Safety Report 8979188 (Version 1)
Quarter: 2012Q4

REPORT INFORMATION
  Report Type: 
  Country: FR (occurrence: FR)
  Receive Date: 20121221
  Receipt Date: 20121221
  Transmission Date: 20130627
  Serious: Yes (Disabling)
  Sender: FDA-Public Use
  Company Number: FR-GLAXOSMITHKLINE-B0674873A

PATIENT
  Age: 79 Year
  Sex: Female

DRUGS (10)
  1. AUGMENTIN [Suspect]
     Indication: CATHETER SITE INFECTION
     Route: 048
     Dates: start: 20100522, end: 20100605
  2. CARBOPLATIN [Suspect]
     Indication: CHEMOTHERAPY
     Route: 042
     Dates: start: 20100402, end: 20100514
  3. PACLITAXEL [Suspect]
     Indication: CHEMOTHERAPY
     Route: 042
     Dates: start: 20100402, end: 20100514
  4. OFLOCET [Suspect]
     Indication: CATHETER SITE INFECTION
     Route: 048
     Dates: start: 20100522, end: 20100530
  5. FLAGYL [Suspect]
     Indication: PRODUCT USED FOR UNKNOWN INDICATION
     Dosage: 500MG Three times per day
     Route: 048
     Dates: start: 20100531, end: 20100617
  6. TARGOCID [Suspect]
     Indication: PRODUCT USED FOR UNKNOWN INDICATION
     Route: 065
     Dates: start: 20100606, end: 20100617
  7. INEXIUM [Suspect]
     Indication: GASTROINTESTINAL HAEMORRHAGE
     Route: 048
     Dates: start: 20100531, end: 20100614
  8. GENTAMICIN [Suspect]
     Indication: PRODUCT USED FOR UNKNOWN INDICATION
     Route: 065
     Dates: start: 20100606
  9. HYDROCORTISONE [Suspect]
     Route: 048
     Dates: start: 20100522, end: 20100530
  10. LASILIX [Concomitant]
     Route: 065

REACTIONS (5)
  - Neuropathy peripheral [Not Recovered/Not Resolved]
  - Muscular weakness [Unknown]
  - Fall [Recovered/Resolved]
  - Sensorimotor disorder [Not Recovered/Not Resolved]
  - Gastrointestinal haemorrhage [None]
